FAERS Safety Report 5146547-4 (Version None)
Quarter: 2006Q4

REPORT INFORMATION
  Report Type: 
  Country: None (occurrence: None)
  Receive Date: 20061109
  Receipt Date: 20061026
  Transmission Date: 20070319
  Serious: Yes (Other)
  Sender: FDA-Public Use
  Company Number: IL-JNJFOC-20061005947

PATIENT
  Age: 69 Year
  Sex: Male

DRUGS (12)
  1. FENTANYL CITRATE [Suspect]
     Route: 062
  2. FENTANYL CITRATE [Suspect]
     Route: 062
  3. FENTANYL CITRATE [Suspect]
     Indication: PAIN
     Route: 062
  4. OXCARBAZEPINE [Interacting]
     Indication: CONVULSION
     Route: 065
  5. ELTROXIN [Concomitant]
     Route: 065
  6. ASPIRIN [Concomitant]
     Route: 065
  7. HYDROCHLOROTHIAZIDE [Concomitant]
     Route: 065
  8. BICALUTAMIDE [Concomitant]
     Route: 065
  9. OXYCODONE HCL [Concomitant]
     Indication: PELVIC PAIN
     Route: 065
  10. OXYCODONE HCL [Concomitant]
     Indication: BONE PAIN
     Route: 065
  11. MORPHINE [Concomitant]
     Route: 065
  12. MORPHINE [Concomitant]
     Indication: BREAKTHROUGH PAIN
     Route: 065

REACTIONS (3)
  - DRUG INTERACTION [None]
  - INADEQUATE ANALGESIA [None]
  - INCORRECT DRUG ADMINISTRATION DURATION [None]
